FAERS Safety Report 10020773 (Version 1)
Quarter: 2014Q1

REPORT INFORMATION
  Report Type: Spontaneous
  Country: JP (occurrence: JP)
  Receive Date: 20140319
  Receipt Date: 20140319
  Transmission Date: 20141002
  Serious: Yes (Hospitalization)
  Sender: FDA-Public Use
  Company Number: JP-ACCORD-022570

PATIENT
  Age: 58 Year
  Sex: Female
  Weight: 60 kg

DRUGS (1)
  1. GEMCITABINE [Suspect]
     Indication: GALLBLADDER CANCER
     Dosage: THE PATIENT HAD STARTED IN MONTH OF AUGUST.

REACTIONS (6)
  - Raynaud^s phenomenon [Recovered/Resolved]
  - Scleroderma renal crisis [Recovered/Resolved]
  - Interstitial lung disease [Recovered/Resolved]
  - Pleural effusion [Recovered/Resolved]
  - Haemangioma [Recovered/Resolved]
  - Haemolytic uraemic syndrome [Recovered/Resolved]
